FAERS Safety Report 12730911 (Version 2)
Quarter: 2016Q4

REPORT INFORMATION
  Report Type: Spontaneous
  Country: US (occurrence: US)
  Receive Date: 20160911
  Receipt Date: 20161015
  Transmission Date: 20170207
  Serious: No
  Sender: FDA-Public Use
  Company Number: US-ASTRAZENECA-2016SE92076

PATIENT
  Age: 31043 Day
  Sex: Female
  Weight: 57.6 kg

DRUGS (1)
  1. SYMBICORT [Suspect]
     Active Substance: BUDESONIDE\FORMOTEROL FUMARATE DIHYDRATE
     Indication: DYSPNOEA
     Dosage: 160/4.5 MCG, TWO PUFFS TWICE PER DAY
     Route: 055
     Dates: start: 2013

REACTIONS (5)
  - Device issue [Unknown]
  - Drug dose omission [Unknown]
  - Intentional device misuse [Unknown]
  - Intentional product misuse [Unknown]
  - Dyspnoea [Unknown]

NARRATIVE: CASE EVENT DATE: 20160822
